FAERS Safety Report 8998540 (Version 1)
Quarter: 2013Q1

REPORT INFORMATION
  Report Type: Spontaneous
  Country: IT (occurrence: IT)
  Receive Date: 20130103
  Receipt Date: 20130103
  Transmission Date: 20140127
  Serious: Yes (Life-Threatening, Hospitalization)
  Sender: FDA-Public Use
  Company Number: IT-ASTRAZENECA-2012SE96550

PATIENT
  Age: 56 Year
  Sex: Male

DRUGS (6)
  1. OMEPRAZOLE [Suspect]
     Route: 048
     Dates: start: 20120603, end: 20120603
  2. PLAVIX [Suspect]
     Route: 048
     Dates: start: 20120603, end: 20120603
  3. RISPERDAL [Suspect]
     Route: 048
     Dates: start: 20120603, end: 20120603
  4. ACETAMINOPHEN CODEINE [Suspect]
     Route: 065
     Dates: start: 20120603, end: 20120603
  5. ZYLORIC [Suspect]
     Route: 065
  6. RIFAXIMIN [Suspect]
     Route: 065
     Dates: start: 20120603, end: 20120603

REACTIONS (3)
  - Coma [Unknown]
  - Miosis [Unknown]
  - Self injurious behaviour [Unknown]
